FAERS Safety Report 10481246 (Version 1)
Quarter: 2014Q3

REPORT INFORMATION
  Report Type: Spontaneous
  Country: US (occurrence: None)
  Receive Date: 20140908
  Receipt Date: 20140908
  Transmission Date: 20150326
  Serious: Yes (Hospitalization, Other)
  Sender: FDA-Public Use
  Company Number: 400067

PATIENT
  Age: 76 Year
  Sex: Female
  Weight: 49.9 kg

DRUGS (6)
  1. CRESTOR [Concomitant]
     Active Substance: ROSUVASTATIN CALCIUM
  2. CYTOMEL (LIOTHYRONINE SODIUM) [Concomitant]
  3. VICTOZA [Suspect]
     Active Substance: LIRAGLUTIDE
     Indication: TYPE 2 DIABETES MELLITUS
     Route: 058
     Dates: start: 201005, end: 20140203
  4. DIAZEPAM (DIAZEPAM) [Concomitant]
     Active Substance: DIAZEPAM
  5. SYNTHROID [Concomitant]
     Active Substance: LEVOTHYROXINE SODIUM
  6. AMANTADINE (AMANTADINE) (AMANTADINE) [Concomitant]
     Active Substance: AMANTADINE

REACTIONS (1)
  - Pancreatitis [None]
